FAERS Safety Report 11815182 (Version 1)
Quarter: 2015Q4

REPORT INFORMATION
  Report Type: Spontaneous
  Country: US (occurrence: US)
  Receive Date: 20151209
  Receipt Date: 20151209
  Transmission Date: 20160305
  Serious: No
  Sender: FDA-Public Use
  Company Number: US-SA-2015SA177725

PATIENT
  Age: 39 Year
  Sex: Female

DRUGS (3)
  1. SOLOSTAR [Concomitant]
     Active Substance: DEVICE
     Dates: start: 20150921, end: 20151103
  2. TOUJEO [Suspect]
     Active Substance: INSULIN GLARGINE
     Indication: GESTATIONAL DIABETES
     Dosage: DOSE: 50 UNITS UNSPECIFIED
     Route: 065
     Dates: start: 20150921, end: 20151103
  3. APIDRA [Suspect]
     Active Substance: INSULIN GLULISINE
     Indication: GESTATIONAL DIABETES
     Dosage: DOSE: 50 (UNITS UNPSCIFIED)
     Route: 065
     Dates: start: 20150921, end: 20151103

REACTIONS (1)
  - Exposure during pregnancy [Unknown]

NARRATIVE: CASE EVENT DATE: 20150921
